FAERS Safety Report 7725629-4 (Version None)
Quarter: 2011Q3

REPORT INFORMATION
  Report Type: 
  Country: None (occurrence: None)
  Receive Date: 20110902
  Receipt Date: 20110823
  Transmission Date: 20111222
  Serious: Yes (Hospitalization)
  Sender: FDA-Public Use
  Company Number: US-US-EMD SERONO, INC.-7056453

PATIENT
  Sex: Female
  Weight: 132 kg

DRUGS (1)
  1. REBIF [Suspect]
     Indication: MULTIPLE SCLEROSIS
     Route: 058
     Dates: start: 20110321, end: 20110401

REACTIONS (3)
  - ECONOMIC PROBLEM [None]
  - TREATMENT NONCOMPLIANCE [None]
  - MULTIPLE SCLEROSIS RELAPSE [None]
